FAERS Safety Report 25665711 (Version 2)
Quarter: 2025Q3

REPORT INFORMATION
  Report Type: Spontaneous
  Country: US (occurrence: US)
  Receive Date: 20250811
  Receipt Date: 20250812
  Transmission Date: 20251020
  Serious: No
  Sender: PFIZER
  Company Number: US-PFIZER INC-202500160471

PATIENT
  Age: 22 Year
  Sex: Female
  Weight: 136.08 kg

DRUGS (1)
  1. DEPO-PROVERA [Suspect]
     Active Substance: MEDROXYPROGESTERONE ACETATE
     Indication: Contraception
     Dosage: 104 MG/0.65 ML ^ONE INCH^, EVERY 90 DAYS
     Route: 058
     Dates: start: 2022

REACTIONS (2)
  - Drug hypersensitivity [Unknown]
  - Pruritus [Unknown]
